FAERS Safety Report 10221116 (Version 1)
Quarter: 2014Q2

REPORT INFORMATION
  Report Type: Spontaneous
  Country: US (occurrence: None)
  Receive Date: 20140604
  Receipt Date: 20140604
  Transmission Date: 20141212
  Serious: Yes (Other)
  Sender: FDA-Public Use
  Company Number: 201405123

PATIENT
  Age: 52 Year
  Sex: Male

DRUGS (3)
  1. TESTIM (TESTOSTERONE) [Suspect]
     Indication: ANDROGEN REPLACEMENT THERAPY
     Route: 062
  2. LISINOPRIL (LISINOPRIL) [Concomitant]
  3. LABETALOL (LABETALOL) [Concomitant]

REACTIONS (3)
  - Demyelinating polyneuropathy [None]
  - Vitamin B6 increased [None]
  - Inflammation [None]
